FAERS Safety Report 7197166-X (Version None)
Quarter: 2010Q4

REPORT INFORMATION
  Report Type: 
  Country: None (occurrence: None)
  Receive Date: 20101224
  Receipt Date: 20101222
  Transmission Date: 20110411
  Serious: Yes (Death)
  Sender: FDA-Public Use
  Company Number: PHEH2009US15598

PATIENT
  Sex: Female

DRUGS (2)
  1. EXJADE [Suspect]
     Dosage: 1500 MG, DAILY
  2. EXJADE [Suspect]
     Dosage: 1000 MG DAILY
     Route: 048

REACTIONS (2)
  - DEATH [None]
  - DIARRHOEA [None]
